FAERS Safety Report 8476051 (Version 2)
Quarter: 2013Q2

REPORT INFORMATION
  Report Type: Spontaneous
  Country: PL (occurrence: None)
  Receive Date: 20120316
  Receipt Date: 20130429
  Transmission Date: 20140414
  Serious: Yes (Hospitalization)
  Sender: FDA-Public Use
  Company Number: PL-024907

PATIENT
  Age: 79 Year
  Sex: Male
  Weight: 64 kg

DRUGS (3)
  1. CHLORAMBUCIL [Suspect]
     Indication: CHRONIC LYMPHOCYTIC LEUKAEMIA
     Dosage: 10 MG/M2, 10MGM2 DAYS 1-7 EVERY 28 DAYS (10 MG/M2, CYCLIC) ORAL
     Route: 048
     Dates: start: 20100330
  2. OFATUMUMAB [Suspect]
     Indication: CHRONIC LYMPHOCYTIC LEUKAEMIA
     Dosage: 300MG DAY 1, 1000MG DAY 8 FOLLOWED BY 1000MG EVERY 28 DAYS INTRAVENOUS (NOT OTHERWISE SPECIFIED)
     Route: 042
     Dates: start: 20100330
  3. NAKLOFEN  (DICLOFENAC) [Concomitant]
     Indication: ANALGESIC THERAPY

REACTIONS (6)
  - GASTRIC HAEMORRHAGE [None]
  - FATIGUE [None]
  - ACTIVITIES OF DAILY LIVING IMPAIRED [None]
  - RADICULITIS [None]
  - SERUM FERRITIN DECREASED [None]
  - Anaemia [None]
